FAERS Safety Report 18108283 (Version 2)
Quarter: 2020Q3

REPORT INFORMATION
  Report Type: Spontaneous
  Country: None (occurrence: VU)
  Receive Date: 20200803
  Receipt Date: 20200813
  Transmission Date: 20201103
  Serious: Yes (Other)
  Sender: FDA-Public Use
  Company Number: NZ-POPULATION COUNCIL, INC.-2088091

PATIENT
  Sex: Female

DRUGS (1)
  1. JADELLE [Suspect]
     Active Substance: LEVONORGESTREL
     Indication: CONTRACEPTION
     Route: 059

REACTIONS (1)
  - Pregnancy with implant contraceptive [Recovered/Resolved]
